FAERS Safety Report 9565271 (Version 1)
Quarter: 2013Q3

REPORT INFORMATION
  Report Type: Report from Study
  Country: BR (occurrence: BR)
  Receive Date: 20130930
  Receipt Date: 20130930
  Transmission Date: 20140515
  Serious: Yes (Other)
  Sender: FDA-Public Use
  Company Number: PHHY2013BR108457

PATIENT
  Sex: Male
  Weight: 72 kg

DRUGS (5)
  1. ACLASTA [Suspect]
     Indication: OSTEOPOROSIS
     Dosage: 5 MG, UNK
     Route: 042
     Dates: start: 2013
  2. AMLODIPINE [Concomitant]
     Dosage: UNK UKN, UNK
     Dates: start: 2008
  3. CRESTOR [Concomitant]
     Dosage: UNK UKN, UNK
     Dates: start: 2013
  4. CALCIUM [Concomitant]
     Dosage: UNK UKN, UNK
     Dates: start: 201307
  5. PANTOPRAZOLE [Concomitant]
     Dosage: UNK UKN, UNK
     Dates: start: 2003

REACTIONS (4)
  - Cerebral thrombosis [Not Recovered/Not Resolved]
  - Cerebrovascular accident [Not Recovered/Not Resolved]
  - Pain in extremity [Not Recovered/Not Resolved]
  - Asthenia [Not Recovered/Not Resolved]
